FAERS Safety Report 5092594-0 (Version None)
Quarter: 2006Q3

REPORT INFORMATION
  Report Type: 
  Country: None (occurrence: None)
  Receive Date: 20060828
  Receipt Date: 20060828
  Transmission Date: 20061208
  Serious: No
  Sender: FDA-Public Use
  Company Number: None

PATIENT
  Age: 50 Year
  Sex: Male
  Weight: 117.4816 kg

DRUGS (9)
  1. REMICADE [Suspect]
     Indication: CROHN'S DISEASE
     Dosage: 590 MG IV
     Route: 042
     Dates: start: 20050818
  2. REMICADE [Suspect]
     Indication: CROHN'S DISEASE
     Dosage: 590 MG IV
     Route: 042
     Dates: start: 20060413
  3. PENTASA [Concomitant]
  4. CHOLESTRAMINE [Concomitant]
  5. GLIPIZIDE [Concomitant]
  6. ENALAPRIL [Concomitant]
  7. DEXADRINE [Concomitant]
  8. LANTUS [Concomitant]
  9. ASPIRIN [Concomitant]

REACTIONS (5)
  - BACK PAIN [None]
  - CHEST DISCOMFORT [None]
  - DYSPNOEA [None]
  - PAIN IN EXTREMITY [None]
  - TREMOR [None]
